FAERS Safety Report 15900355 (Version 1)
Quarter: 2019Q1

REPORT INFORMATION
  Report Type: Spontaneous
  Country: CA (occurrence: CA)
  Receive Date: 20190201
  Receipt Date: 20190201
  Transmission Date: 20190417
  Serious: Yes (Death, Hospitalization, Other)
  Sender: FDA-Public Use
  Company Number: CA-BAUSCH-BL-2019-002592

PATIENT
  Age: 61 Year
  Sex: Female

DRUGS (13)
  1. MINOCYCLINE HYDROCHLORIDE. [Suspect]
     Active Substance: MINOCYCLINE HYDROCHLORIDE
     Indication: PYODERMA GANGRENOSUM
     Route: 048
  2. FLUTICASONE. [Suspect]
     Active Substance: FLUTICASONE
     Indication: PYODERMA GANGRENOSUM
     Route: 061
  3. AZATHIOPRINE. [Suspect]
     Active Substance: AZATHIOPRINE
     Indication: PYODERMA GANGRENOSUM
     Route: 048
  4. CICLOSPORIN [Suspect]
     Active Substance: CYCLOSPORINE
     Indication: PYODERMA GANGRENOSUM
     Route: 042
  5. PREDNISONE. [Suspect]
     Active Substance: PREDNISONE
     Indication: PYODERMA GANGRENOSUM
     Route: 048
  6. AZATHIOPRINE. [Suspect]
     Active Substance: AZATHIOPRINE
     Indication: PYODERMA GANGRENOSUM
     Route: 048
  7. IMMUNE GLOBULIN (HUMAN) [Suspect]
     Active Substance: HUMAN IMMUNOGLOBULIN G
     Indication: PYODERMA GANGRENOSUM
     Route: 042
  8. PREDNISOLONE SODIUM PHOSPHATE. [Suspect]
     Active Substance: PREDNISOLONE SODIUM PHOSPHATE
     Indication: PYODERMA GANGRENOSUM
     Route: 048
  9. HYDROCORTISONE. [Suspect]
     Active Substance: HYDROCORTISONE
     Indication: PYODERMA GANGRENOSUM
     Route: 042
  10. COLCHICINE. [Suspect]
     Active Substance: COLCHICINE
     Indication: PYODERMA GANGRENOSUM
     Route: 048
  11. CARBOXYMETHYLCELLULOSE [Concomitant]
     Active Substance: CARBOXYMETHYLCELLULOSE
     Indication: PRODUCT USED FOR UNKNOWN INDICATION
  12. AZATHIOPRINE. [Suspect]
     Active Substance: AZATHIOPRINE
     Indication: MYASTHENIA GRAVIS
  13. AZATHIOPRINE. [Suspect]
     Active Substance: AZATHIOPRINE
     Indication: MYASTHENIA GRAVIS

REACTIONS (9)
  - Enterococcal sepsis [Fatal]
  - Pulmonary mass [Fatal]
  - Urinary tract infection [Fatal]
  - Treatment failure [Fatal]
  - Septic shock [Fatal]
  - Off label use [Fatal]
  - Disseminated intravascular coagulation [Fatal]
  - Hepatic failure [Fatal]
  - Pancytopenia [Fatal]
